FAERS Safety Report 4796348-1 (Version None)
Quarter: 2005Q4

REPORT INFORMATION
  Report Type: 
  Country: None (occurrence: None)
  Receive Date: 20051007
  Receipt Date: 20050927
  Transmission Date: 20060501
  Serious: Yes (Disabling)
  Sender: FDA-Public Use
  Company Number: HQWYE629311MAY05

PATIENT
  Age: 73 Year
  Sex: Female

DRUGS (12)
  1. CORDARONE [Suspect]
     Indication: ATRIAL FIBRILLATION
     Dosage: 200 MG 1X PER 1 DAY; ORAL
     Route: 048
     Dates: start: 20020101, end: 20050607
  2. WARFARIN SODIUM [Concomitant]
  3. COVERSYL (PERINDOPRIL) [Concomitant]
  4. LASIX [Concomitant]
  5. OMEPRAZOLE [Concomitant]
  6. PERROGRANDUMET (FERROUS SULFATE) [Concomitant]
  7. ATENOLOL [Concomitant]
  8. SPIRIVA [Concomitant]
  9. VENTOLIN [Concomitant]
  10. CAL-SUP (CALCIUM CARBONATE) [Concomitant]
  11. VITAMIN D [Concomitant]
  12. PANAMAX (PARACETAMOL) [Concomitant]

REACTIONS (18)
  - BALANCE DISORDER [None]
  - BLISTER [None]
  - BODY HEIGHT DECREASED [None]
  - CARDIOMEGALY [None]
  - CORNEAL DEPOSITS [None]
  - COUGH [None]
  - DRUG TOXICITY [None]
  - DYSPNOEA [None]
  - FACE OEDEMA [None]
  - GENERALISED OEDEMA [None]
  - HIATUS HERNIA [None]
  - INTERSTITIAL LUNG DISEASE [None]
  - LINEAR IGA DISEASE [None]
  - MITRAL VALVE CALCIFICATION [None]
  - PARATRACHEAL LYMPHADENOPATHY [None]
  - PHOTOSENSITIVITY REACTION [None]
  - SWELLING FACE [None]
  - VERTIGO [None]
